FAERS Safety Report 23259062 (Version 1)
Quarter: 2023Q4

REPORT INFORMATION
  Report Type: Spontaneous
  Country: JP (occurrence: JP)
  Receive Date: 20231204
  Receipt Date: 20231204
  Transmission Date: 20240110
  Serious: Yes (Other)
  Sender: FDA-Public Use
  Company Number: JP-OTSUKA-2023_030339

PATIENT
  Sex: Female

DRUGS (1)
  1. ABILIFY [Suspect]
     Active Substance: ARIPIPRAZOLE
     Indication: Schizophrenia
     Dosage: UNK
     Route: 048
     Dates: start: 202306, end: 20231114

REACTIONS (16)
  - Hallucination, auditory [Unknown]
  - Social anxiety disorder [Unknown]
  - Thinking abnormal [Unknown]
  - Dysarthria [Unknown]
  - Throat tightness [Unknown]
  - Muscle rigidity [Unknown]
  - Pain in extremity [Unknown]
  - Drooling [Recovered/Resolved]
  - Asthenia [Unknown]
  - Memory impairment [Unknown]
  - Depression [Unknown]
  - Tremor [Recovered/Resolved]
  - Nausea [Recovered/Resolved]
  - Insomnia [Unknown]
  - Salivary hypersecretion [Unknown]
  - Product use issue [Unknown]

NARRATIVE: CASE EVENT DATE: 20230101
